FAERS Safety Report 7722502-2 (Version None)
Quarter: 2011Q3

REPORT INFORMATION
  Report Type: 
  Country: None (occurrence: None)
  Receive Date: 20110831
  Receipt Date: 20110829
  Transmission Date: 20111222
  Serious: Yes (Other)
  Sender: FDA-Public Use
  Company Number: JP-PFIZER INC-2011189970

PATIENT
  Age: 75 Year
  Sex: Female

DRUGS (5)
  1. THEOPHYLLINE [Concomitant]
     Dosage: 200 MG/DAY
     Route: 048
     Dates: end: 20110821
  2. THEOPHYLLINE [Concomitant]
     Dosage: 500 MG/DAY
     Route: 048
     Dates: start: 20110822
  3. FLAVERIC [Concomitant]
     Indication: COUGH
     Dosage: 60 MG/DAY
     Route: 048
     Dates: start: 20110725
  4. LYRICA [Suspect]
     Dosage: 150 MG/DAY
     Route: 048
     Dates: start: 20110726
  5. LYRICA [Suspect]
     Indication: NEURALGIA
     Dosage: 75 MG/DAY
     Route: 048
     Dates: start: 20110721, end: 20110725

REACTIONS (2)
  - DRUG INEFFECTIVE [None]
  - ASTHMA [None]
